FAERS Safety Report 26166130 (Version 1)
Quarter: 2025Q4

REPORT INFORMATION
  Report Type: Report from Study
  Country: EU (occurrence: EU)
  Receive Date: 20251216
  Receipt Date: 20251216
  Transmission Date: 20260117
  Serious: Yes (Hospitalization)
  Sender: ABBVIE
  Company Number: EU-ABBVIE-6589916

PATIENT
  Age: 73 Year
  Sex: Female

DRUGS (3)
  1. FOSCARBIDOPA\FOSLEVODOPA [Suspect]
     Active Substance: FOSCARBIDOPA\FOSLEVODOPA
     Indication: Parkinson^s disease
     Dosage: EXTRA DOSE: 0.1, LOW RATE: 0.48, HIGH RATE: 0.39, BASE RATE: 0.53, LOADING DOSE: 0.9
     Route: 058
     Dates: start: 20250210
  2. PRAMIPEXOLE [Concomitant]
     Active Substance: PRAMIPEXOLE
     Indication: Parkinson^s disease
     Dates: start: 20250218
  3. AZILECT [Concomitant]
     Active Substance: RASAGILINE MESYLATE
     Indication: Parkinson^s disease
     Dates: start: 20250218

REACTIONS (3)
  - Femur fracture [Unknown]
  - Fall [Unknown]
  - Device physical property issue [Not Recovered/Not Resolved]

NARRATIVE: CASE EVENT DATE: 20251212
